FAERS Safety Report 9173344 (Version 1)
Quarter: 2013Q1

REPORT INFORMATION
  Report Type: Spontaneous
  Country: GR (occurrence: None)
  Receive Date: 20130314
  Receipt Date: 20130314
  Transmission Date: 20140127
  Serious: Yes (Hospitalization)
  Sender: FDA-Public Use
  Company Number: KAD201303-000330

PATIENT
  Age: 44 Year
  Sex: Male

DRUGS (13)
  1. AMPHOTERICIN B [Suspect]
     Route: 042
  2. AMPHOTERICIN B [Suspect]
     Route: 042
  3. AMPHOTERICIN B [Suspect]
     Route: 042
  4. AMPHOTERICIN B [Suspect]
     Route: 042
  5. AMPHOTERICIN B [Suspect]
     Route: 042
  6. AMPHOTERICIN B [Suspect]
     Route: 042
  7. AMPHOTERICIN B [Suspect]
     Route: 042
  8. LIPOSOMAL AMPHOTERICIN [Suspect]
  9. FLUCYTOSINE [Suspect]
  10. LOPINAVIR (+) RITONAVIR [Suspect]
  11. TENOFOVIR [Suspect]
  12. EMTRICITABINE [Suspect]
  13. FLUCONAZOLE (FLUCONAZOLE) [Suspect]

REACTIONS (5)
  - Adrenal insufficiency [None]
  - Blood urea increased [None]
  - Blood creatinine increased [None]
  - Immune reconstitution inflammatory syndrome [None]
  - Drug ineffective [None]
